FAERS Safety Report 7228200-6 (Version None)
Quarter: 2011Q1

REPORT INFORMATION
  Report Type: 
  Country: None (occurrence: None)
  Receive Date: 20110114
  Receipt Date: 20101229
  Transmission Date: 20110831
  Serious: No
  Sender: FDA-Public Use
  Company Number: US-B.I. PHARMACEUTICALS,INC./RIDGEFIELD-2011-BP-00296BP

PATIENT
  Sex: Female

DRUGS (6)
  1. ZOMIG [Concomitant]
     Indication: MIGRAINE
     Dosage: 5 MG
     Route: 048
     Dates: start: 20020101
  2. ZANTAC 75 [Suspect]
     Indication: DYSPEPSIA
     Dosage: 75 MG
     Route: 048
     Dates: start: 20101229, end: 20101229
  3. TUSSIONEX [Concomitant]
     Indication: PNEUMONIA
     Route: 048
     Dates: start: 20101229
  4. TOPAMAX [Concomitant]
     Indication: MIGRAINE
     Dosage: 275 MG
     Route: 048
     Dates: start: 20040101
  5. ATACAND [Concomitant]
     Indication: MIGRAINE
     Dosage: 16 MG
     Route: 048
     Dates: start: 20040101
  6. ZITHROMAX [Concomitant]
     Indication: PNEUMONIA
     Route: 048
     Dates: start: 20101229

REACTIONS (1)
  - MIGRAINE [None]
